FAERS Safety Report 14742753 (Version 1)
Quarter: 2018Q2

REPORT INFORMATION
  Report Type: Report from Study
  Country: JP (occurrence: JP)
  Receive Date: 20180410
  Receipt Date: 20180410
  Transmission Date: 20180711
  Serious: Yes (Death, Other)
  Sender: FDA-Public Use
  Company Number: PHHY2010JP097863

PATIENT
  Age: 62 Year
  Sex: Female
  Weight: 38 kg

DRUGS (2)
  1. XELODA [Concomitant]
     Active Substance: CAPECITABINE
     Indication: PRODUCT USED FOR UNKNOWN INDICATION
     Dosage: 2400 MG,
     Route: 048
     Dates: start: 20091009, end: 20091106
  2. TYKERB [Suspect]
     Active Substance: LAPATINIB DITOSYLATE
     Indication: BREAST CANCER
     Dosage: 250 MG,
     Route: 048
     Dates: start: 20091009, end: 20091106

REACTIONS (4)
  - Paronychia [Recovering/Resolving]
  - Malignant neoplasm progression [Fatal]
  - Liver function test increased [Not Recovered/Not Resolved]
  - Breast cancer [Fatal]

NARRATIVE: CASE EVENT DATE: 20091106
